FAERS Safety Report 5133773-3 (Version None)
Quarter: 2006Q4

REPORT INFORMATION
  Report Type: 
  Country: None (occurrence: None)
  Receive Date: 20061018
  Receipt Date: 20061005
  Transmission Date: 20070319
  Serious: Yes (Other)
  Sender: FDA-Public Use
  Company Number: 2006117672

PATIENT
  Age: 35 Year
  Sex: Female

DRUGS (2)
  1. DELTACORTRIL [Suspect]
     Indication: WHIPLASH INJURY
     Dosage: 30 MG (10 MG, 3 IN 1 D), ORAL
     Route: 048
     Dates: start: 20060901
  2. DICLOFENAC SODIUM [Suspect]

REACTIONS (3)
  - GASTRIC ULCER [None]
  - HAEMATOCHEZIA [None]
  - NAUSEA [None]
